FAERS Safety Report 12928906 (Version 1)
Quarter: 2016Q4

REPORT INFORMATION
  Report Type: Spontaneous
  Country: AU (occurrence: AU)
  Receive Date: 20161110
  Receipt Date: 20161110
  Transmission Date: 20170207
  Serious: Yes (Hospitalization)
  Sender: FDA-Public Use
  Company Number: AU-MYLANLABS-2016M1048100

PATIENT

DRUGS (2)
  1. PALIPERIDONE. [Suspect]
     Active Substance: PALIPERIDONE
     Dosage: 3MG DAILY
     Route: 048
  2. PALIPERIDONE. [Suspect]
     Active Substance: PALIPERIDONE
     Indication: SCHIZOAFFECTIVE DISORDER
     Dosage: 75 MG MONTHLY FOR THE LAST 2 YEARS
     Route: 065

REACTIONS (4)
  - Delusion [Recovered/Resolved]
  - Mania [Recovered/Resolved]
  - Hallucination, auditory [Recovered/Resolved]
  - Hyperprolactinaemia [Recovered/Resolved]
